FAERS Safety Report 19978982 (Version 1)
Quarter: 2021Q4

REPORT INFORMATION
  Report Type: Report from Study
  Country: DE (occurrence: DE)
  Receive Date: 20211020
  Receipt Date: 20211020
  Transmission Date: 20220303
  Serious: Yes (Hospitalization, Other)
  Sender: FDA-Public Use
  Company Number: DE-TAKEDA-2021TUS064735

PATIENT
  Age: 62 Year
  Sex: Male
  Weight: 74 kg

DRUGS (11)
  1. VEDOLIZUMAB [Suspect]
     Active Substance: VEDOLIZUMAB
     Indication: Inflammatory bowel disease
     Dosage: 300 MILLIGRAM
     Route: 042
  2. PREDNISOLONE [Concomitant]
     Active Substance: PREDNISOLONE
     Indication: Inflammatory bowel disease
     Dosage: 5 MILLIGRAM, QD
     Dates: start: 20210930
  3. Ursodeoxycholic acid Orion [Concomitant]
     Indication: Cholangitis sclerosing
     Dosage: 500 MILLIGRAM, BID
     Dates: start: 20180101
  4. ASPIRIN [Concomitant]
     Active Substance: ASPIRIN
     Indication: Coronary artery disease
     Dosage: 100 MILLIGRAM, QD
     Dates: start: 20100101
  5. Hepa merz [Concomitant]
     Indication: Cholangitis sclerosing
     Dosage: 1000 MILLIGRAM, TID
     Dates: start: 20210630
  6. CHOLECALCIFEROL [Concomitant]
     Active Substance: CHOLECALCIFEROL
     Indication: Vitamin D deficiency
     Dosage: 2000 INTERNATIONAL UNIT, 1/WEEK
     Dates: start: 20210630
  7. TORSEMIDE [Concomitant]
     Active Substance: TORSEMIDE
     Indication: Cardiac failure
     Dosage: 5 MILLIGRAM, QD
     Dates: start: 20100101
  8. EPLERENONE [Concomitant]
     Active Substance: EPLERENONE
     Indication: Cardiac failure
     Dosage: 50 MILLIGRAM, QD
     Dates: start: 20100101
  9. CARVEDILOL [Concomitant]
     Active Substance: CARVEDILOL
     Indication: Cardiac failure
     Dosage: 12.5 MILLIGRAM, BID
     Dates: start: 20210630
  10. ATORVASTATIN [Concomitant]
     Active Substance: ATORVASTATIN
     Indication: Hypercholesterolaemia
     Dosage: 10 MILLIGRAM, QD
     Dates: start: 20100101
  11. LEVOTHYROXINE [Concomitant]
     Active Substance: LEVOTHYROXINE
     Indication: Hypothyroidism
     Dosage: 75 MICROGRAM, QD
     Dates: start: 20210630

REACTIONS (1)
  - Hepatocellular carcinoma [Unknown]
